FAERS Safety Report 10469218 (Version 2)
Quarter: 2017Q4

REPORT INFORMATION
  Report Type: Spontaneous
  Country: CA (occurrence: CA)
  Receive Date: 20140923
  Receipt Date: 20171227
  Transmission Date: 20180320
  Serious: Yes (Hospitalization, Other)
  Sender: FDA-Public Use
  Company Number: CA-009507513-1409CAN010024

PATIENT
  Age: 67 Year
  Sex: Female

DRUGS (24)
  1. DILTIAZEM HYDROCHLORIDE. [Concomitant]
     Active Substance: DILTIAZEM HYDROCHLORIDE
  2. CHONDROITIN SULFATE SODIUM (+) GLUCOSAMINE SULFATE [Concomitant]
  3. TASIGNA [Suspect]
     Active Substance: NILOTINIB
     Indication: CHRONIC MYELOID LEUKAEMIA
     Dosage: 400 MG, BID, THERAPY DURATTION: 3 DAYS
     Route: 048
     Dates: start: 20110820, end: 20110822
  4. ACETAMINOPHEN. [Concomitant]
     Active Substance: ACETAMINOPHEN
  5. FOLIC ACID. [Concomitant]
     Active Substance: FOLIC ACID
  6. OXYCODONE [Concomitant]
     Active Substance: OXYCODONE
  7. CRANBERRY. [Concomitant]
     Active Substance: CRANBERRY
  8. OMEGA-3 ACIDS [Concomitant]
     Active Substance: OMEGA-3 FATTY ACIDS
  9. CLONAZEPAM. [Concomitant]
     Active Substance: CLONAZEPAM
  10. GRAPE SEEDS [Concomitant]
  11. LANSOPRAZOLE. [Concomitant]
     Active Substance: LANSOPRAZOLE
  12. TELMISARTAN. [Concomitant]
     Active Substance: TELMISARTAN
  13. VITAMIN D [Concomitant]
     Active Substance: CHOLECALCIFEROL
  14. MAGNESIUM (UNSPECIFIED) [Concomitant]
     Active Substance: MAGNESIUM
  15. VITAMIN B COMPLEX [Concomitant]
     Active Substance: CYANOCOBALAMIN\DEXPANTHENOL\NIACINAMIDE\PYRIDOXINE HYDROCHLORIDE\RIBOFLAVIN 5^-PHOSPHATE SODIUM\THIAMINE HYDROCHLORIDE\VITAMIN B COMPLEX
  16. EZETROL [Suspect]
     Active Substance: EZETIMIBE
     Dosage: 10 MG, QD
     Route: 065
  17. ADVAIR HFA [Concomitant]
     Active Substance: FLUTICASONE PROPIONATE\SALMETEROL XINAFOATE
  18. METFORMIN [Concomitant]
     Active Substance: METFORMIN HYDROCHLORIDE
  19. ASPIRIN. [Concomitant]
     Active Substance: ASPIRIN
  20. GLUCOSAMINE [Concomitant]
     Active Substance: GLUCOSAMINE
  21. GLICLAZIDE [Concomitant]
     Active Substance: GLICLAZIDE
  22. HYDROXYZINE [Concomitant]
     Active Substance: HYDROXYZINE HYDROCHLORIDE
  23. ALBUTEROL. [Concomitant]
     Active Substance: ALBUTEROL
  24. ACETAMINOPHEN. [Concomitant]
     Active Substance: ACETAMINOPHEN

REACTIONS (9)
  - Blood alkaline phosphatase increased [Unknown]
  - Abdominal pain upper [Unknown]
  - Lipase increased [Unknown]
  - Hypokalaemia [Unknown]
  - Sleep apnoea syndrome [Unknown]
  - Alanine aminotransferase increased [Unknown]
  - Pancreatitis [Unknown]
  - Vomiting [Unknown]
  - Blood bilirubin increased [Unknown]
